FAERS Safety Report 24793168 (Version 1)
Quarter: 2024Q4

REPORT INFORMATION
  Report Type: Spontaneous
  Country: FR (occurrence: FR)
  Receive Date: 20241231
  Receipt Date: 20241231
  Transmission Date: 20250115
  Serious: Yes (Hospitalization)
  Sender: TEVA
  Company Number: None

PATIENT
  Age: 68 Year
  Sex: Female

DRUGS (3)
  1. CIPROFLOXACIN [Suspect]
     Active Substance: CIPROFLOXACIN
     Indication: Infection
     Dosage: 500 MG MORNING AND EVENING
     Route: 048
     Dates: start: 20241126, end: 20241204
  2. INNOHEP [Suspect]
     Active Substance: TINZAPARIN SODIUM
     Indication: Thrombosis prophylaxis
     Dosage: 45,000 IU/DAY ; SOLUTION FOR INJECTION (S.C.) IN PRE-FILLED SYRINGE; 4,500 IU ANTI-XA/0.45 ML
     Route: 058
     Dates: start: 20241121, end: 20241129
  3. CEFEPIME [Suspect]
     Active Substance: CEFEPIME HYDROCHLORIDE
     Indication: Infection
     Dosage: 2 G TWICE DAILY
     Route: 042
     Dates: start: 20241126, end: 20241204

REACTIONS (1)
  - Rash maculo-papular [Recovering/Resolving]

NARRATIVE: CASE EVENT DATE: 20241202
